FAERS Safety Report 18538334 (Version 4)
Quarter: 2021Q2

REPORT INFORMATION
  Report Type: Spontaneous
  Country: US (occurrence: US)
  Receive Date: 20201123
  Receipt Date: 20210430
  Transmission Date: 20210717
  Serious: Yes (Death, Hospitalization, Other)
  Sender: FDA-Public Use
  Company Number: US-GILEAD-2020-0505420

PATIENT
  Age: 91 Year
  Sex: Male
  Weight: 63.5 kg

DRUGS (32)
  1. CALMOSEPTINE [MENTHOL;ZINC OXIDE] [Concomitant]
  2. ALBUTEROL;IPRATROPIUM [Concomitant]
     Active Substance: ALBUTEROL\IPRATROPIUM
     Dosage: UNK
     Dates: start: 20201116
  3. ETOMIDATE. [Concomitant]
     Active Substance: ETOMIDATE
     Dosage: UNK
     Dates: start: 20201116, end: 20201116
  4. INSULIN [Concomitant]
     Active Substance: INSULIN NOS
     Dosage: UNK
     Dates: start: 20201116, end: 20201116
  5. NAPROSYN [Concomitant]
     Active Substance: NAPROXEN
  6. BREO ELLIPTA [Concomitant]
     Active Substance: FLUTICASONE FUROATE\VILANTEROL TRIFENATATE
  7. DECADRON [Concomitant]
     Active Substance: DEXAMETHASONE
  8. MIDAZOLAM. [Concomitant]
     Active Substance: MIDAZOLAM
  9. CEFAZOLIN [Concomitant]
     Active Substance: CEFAZOLIN
  10. VANCOMYCIN [Concomitant]
     Active Substance: VANCOMYCIN
     Dosage: UNK
     Dates: start: 20201116, end: 20201117
  11. CHLORHEXIDINE [Concomitant]
     Active Substance: CHLORHEXIDINE
     Dosage: UNK
     Dates: start: 20201116
  12. PROPOFOL. [Concomitant]
     Active Substance: PROPOFOL
     Dosage: UNK
     Dates: start: 20201116
  13. VECURONIUM [Concomitant]
     Active Substance: VECURONIUM BROMIDE
  14. PLASMA [Concomitant]
     Active Substance: HUMAN PLASMA
  15. SULINDAC. [Concomitant]
     Active Substance: SULINDAC
  16. CLOPIDOGREL [Concomitant]
     Active Substance: CLOPIDOGREL BISULFATE
     Dosage: UNK
     Dates: start: 20201116
  17. TRAMADOL. [Concomitant]
     Active Substance: TRAMADOL
  18. FENTANYL. [Concomitant]
     Active Substance: FENTANYL
     Dosage: UNK
     Dates: start: 20201116
  19. SODIUM BICARBONATE. [Concomitant]
     Active Substance: SODIUM BICARBONATE
     Dosage: UNK
     Dates: start: 20201116
  20. LIPITOR [Concomitant]
     Active Substance: ATORVASTATIN CALCIUM
  21. DEXAMETHASONE. [Concomitant]
     Active Substance: DEXAMETHASONE
     Dosage: UNK
     Dates: start: 20201115
  22. ACETAMINOPHEN. [Concomitant]
     Active Substance: ACETAMINOPHEN
     Dosage: UNK
     Dates: start: 20201115, end: 20201115
  23. ASPIRIN [ACETYLSALICYLIC ACID] [Concomitant]
     Active Substance: ASPIRIN
     Dosage: UNK
     Dates: start: 20201116
  24. GLUCOSE [Concomitant]
     Active Substance: DEXTROSE
  25. VEKLURY [Suspect]
     Active Substance: REMDESIVIR
     Indication: COVID-19
     Dosage: 200 MG, ONCE
     Route: 042
     Dates: start: 20201116, end: 20201116
  26. GABAPENTIN. [Concomitant]
     Active Substance: GABAPENTIN
  27. TYLENOL [Concomitant]
     Active Substance: ACETAMINOPHEN
  28. PIPERACILLIN AND TAZOBACTAM [Concomitant]
     Active Substance: PIPERACILLIN SODIUM\TAZOBACTAM SODIUM
     Dosage: UNK
     Dates: start: 20201115, end: 20201117
  29. LOPID [Concomitant]
     Active Substance: GEMFIBROZIL
  30. NIACIN. [Concomitant]
     Active Substance: NIACIN
  31. CODEINE [Concomitant]
     Active Substance: CODEINE
  32. ZOSYN [Concomitant]
     Active Substance: PIPERACILLIN SODIUM\TAZOBACTAM SODIUM

REACTIONS (12)
  - Shock [Recovered/Resolved]
  - Acute respiratory failure [Not Recovered/Not Resolved]
  - Metabolic acidosis [Recovered/Resolved]
  - Hypotension [Recovered/Resolved]
  - Cardiogenic shock [Recovered/Resolved]
  - Cardiac failure [Unknown]
  - Acute myocardial infarction [Fatal]
  - COVID-19 pneumonia [Fatal]
  - Sepsis [Recovered/Resolved]
  - Bradycardia [Recovered/Resolved]
  - Myocardial infarction [Recovered/Resolved]
  - Acute kidney injury [Fatal]

NARRATIVE: CASE EVENT DATE: 20201116
